FAERS Safety Report 25937987 (Version 2)
Quarter: 2025Q4

REPORT INFORMATION
  Report Type: Report from Study
  Country: EG (occurrence: EG)
  Receive Date: 20251018
  Receipt Date: 20251024
  Transmission Date: 20260117
  Serious: Yes (Hospitalization, Other)
  Sender: NOVARTIS
  Company Number: EG-002147023-NVSC2025EG161313

PATIENT
  Sex: Female
  Weight: 70 kg

DRUGS (12)
  1. ENTRESTO [Suspect]
     Active Substance: SACUBITRIL\VALSARTAN
     Indication: Cardiac failure
     Dosage: UNK (START DATE: 5 TO 6 YEARS AGO FROM MRD 14-OCT-2025 END DATE: 1 TO 2 YEARS AFTER THE START DATE)
     Route: 048
  2. ENTRESTO [Suspect]
     Active Substance: SACUBITRIL\VALSARTAN
     Dosage: 100 MG, OTHER (HALF TABLET TWICE DAILY (OFF LABEL DOSE)) (START DATE: 1 TO 2 YEARS AFTER START DATE
     Route: 048
  3. ENTRESTO [Suspect]
     Active Substance: SACUBITRIL\VALSARTAN
     Dosage: 50 MG, BID (START DATE: ONE WEEK AGO)
     Route: 048
  4. TORSEMIDE [Concomitant]
     Active Substance: TORSEMIDE
     Indication: Polyuria
     Dosage: 100 MG, QD (START DATE: 25 YEARS AGO)
     Route: 048
  5. LEVOTHYROXINE [Concomitant]
     Active Substance: LEVOTHYROXINE
     Indication: Thyroid disorder
     Dosage: 75 MG, QD (START DATE: 3 YEARS AGO)
     Route: 048
  6. Antodine [Concomitant]
     Indication: Abdominal discomfort
     Dosage: 40 MG, QD (START DATE: 5 MONTHS AGO)
     Route: 048
  7. CARVEDILOL [Concomitant]
     Active Substance: CARVEDILOL
     Indication: Blood pressure abnormal
     Dosage: 6.25 MG, OTHER (HALF TABLET TWICE DAILY)
     Route: 065
  8. Dapaglif [Concomitant]
     Indication: Glucose tolerance impaired
     Dosage: 10 MG, QD (START DATE: 2 TO 3 YEARS AGO)
     Route: 048
  9. EZETIMIBE\ROSUVASTATIN [Concomitant]
     Active Substance: EZETIMIBE\ROSUVASTATIN
     Indication: Blood cholesterol abnormal
     Dosage: UNK (10/10 MG), QD (START DATE: 20 YEARS AGO)
     Route: 048
  10. POTASSIUM [Concomitant]
     Active Substance: POTASSIUM
     Indication: Supplementation therapy
     Dosage: UNK, QD, SYRUP (START DATE: 5 YEARS AGO)
     Route: 048
  11. FOLIC ACID [Concomitant]
     Active Substance: FOLIC ACID
     Indication: Supplementation therapy
     Dosage: UNK (500 ?G/KG(MICROGRAM/KILOGRAM), QD (START DATE: ONE MONTH AGO FROM MRD 14-OCT-2025)
     Route: 048
  12. VITAMIN C [Concomitant]
     Active Substance: ASCORBIC ACID
     Indication: Supplementation therapy
     Dosage: UNK, QD (POWDER) (START DATE: ONE MONTH AGO)
     Route: 048

REACTIONS (4)
  - Hypotension [Not Recovered/Not Resolved]
  - Haemoglobin decreased [Not Recovered/Not Resolved]
  - Gallbladder enlargement [Recovering/Resolving]
  - Off label use [Unknown]
